FAERS Safety Report 7366123-2 (Version None)
Quarter: 2011Q1

REPORT INFORMATION
  Report Type: 
  Country: None (occurrence: None)
  Receive Date: 20110322
  Receipt Date: 20110317
  Transmission Date: 20110831
  Serious: Yes (Death, Hospitalization)
  Sender: FDA-Public Use
  Company Number: US-AMGEN-USASP2011012784

PATIENT
  Age: 58 Year
  Sex: Male
  Weight: 95 kg

DRUGS (27)
  1. INSULIN HUMAN [Concomitant]
  2. MAGNESIUM SULFATE [Concomitant]
  3. MIDAZOLAM [Concomitant]
  4. POTASSIUM PHOSPHATES [Concomitant]
  5. VORICONAZOLE [Concomitant]
  6. ACYCLOVIR [Concomitant]
     Dosage: UNK
     Dates: start: 20101005, end: 20101125
  7. CHOLESTYRAMINE [Concomitant]
  8. MICAFUNGIN [Concomitant]
  9. MORPHINE SULFATE [Concomitant]
  10. PANTOPRAZOLE [Concomitant]
  11. OCULAR LUBRICANT                   /00445101/ [Concomitant]
  12. CALCIUM CHLORIDE                   /00203801/ [Concomitant]
     Dosage: UNK
     Dates: start: 20101116, end: 20101125
  13. IMMUNOGLOBULINS [Concomitant]
  14. MYCOPHENOLATE MOFETIL [Concomitant]
  15. TACROLIMUS [Concomitant]
  16. CEFEPIME [Concomitant]
     Dosage: UNK
     Dates: start: 20100922, end: 20101125
  17. LEVOFLOXACIN [Concomitant]
  18. ONDANSETRON [Concomitant]
  19. DEXTROSE [Concomitant]
  20. DOPAMINE HCL IN 5% DEXTROSE [Concomitant]
  21. VANCOMYCIN [Concomitant]
  22. IPRATROPIUM BROMIDE AND ALBUTEROL SULFATE [Concomitant]
  23. MEROPENEM [Concomitant]
  24. NPLATE [Suspect]
     Indication: THROMBOCYTOPENIA
     Dosage: 190 A?G, ONE TIME DOSE
     Route: 058
     Dates: start: 20101123, end: 20101125
  25. LORAZEPAM [Concomitant]
     Dosage: UNK
  26. NOREPINEPHRINE BITARTRATE [Concomitant]
  27. VASOPRESSIN [Concomitant]

REACTIONS (3)
  - HYPOTENSION [None]
  - SEPSIS [None]
  - RENAL FAILURE [None]
